FAERS Safety Report 19924245 (Version 1)
Quarter: 2021Q4

REPORT INFORMATION
  Report Type: Spontaneous
  Country: US (occurrence: US)
  Receive Date: 20211006
  Receipt Date: 20211006
  Transmission Date: 20220304
  Serious: No
  Sender: FDA-Public Use
  Company Number: US-ELI_LILLY_AND_COMPANY-US202109012130

PATIENT
  Age: 61 Year
  Sex: Male

DRUGS (5)
  1. ETESEVIMAB [Suspect]
     Active Substance: ETESEVIMAB
     Indication: COVID-19
     Dosage: UNK, SINGLE
     Route: 042
  2. ETESEVIMAB [Suspect]
     Active Substance: ETESEVIMAB
     Dosage: UNK, SINGLE
     Route: 058
  3. BAMLANIVIMAB [Suspect]
     Active Substance: BAMLANIVIMAB
     Indication: COVID-19
     Dosage: UNK, SINGLE
     Route: 042
  4. BAMLANIVIMAB [Suspect]
     Active Substance: BAMLANIVIMAB
     Dosage: UNK, SINGLE
     Route: 058
  5. SODIUM CHLORIDE [Concomitant]
     Active Substance: SODIUM CHLORIDE
     Indication: Medication dilution
     Dosage: 50 ML, SINGLE
     Route: 042

REACTIONS (2)
  - Infusion site mass [Not Recovered/Not Resolved]
  - Incorrect route of product administration [Unknown]
